FAERS Safety Report 9520849 (Version 1)
Quarter: 2013Q1

REPORT INFORMATION
  Report Type: Spontaneous
  Country: US (occurrence: None)
  Receive Date: 20130305
  Receipt Date: 20130305
  Transmission Date: 20140127
  Serious: Yes (Hospitalization, Other)
  Sender: FDA-Public Use
  Company Number: 163-21880-09070913

PATIENT
  Age: 68 Year
  Sex: Male
  Weight: 57.61 kg

DRUGS (14)
  1. REVLIMID [Suspect]
     Indication: PLASMA CELL MYELOMA
     Route: 048
     Dates: start: 20090217, end: 20090713
  2. ALLOPURINOL (ALLOPURINOL) [Concomitant]
  3. NORVASC (AMLODIPINE BESILATE) [Concomitant]
  4. ARIXTRA (FONDAPARINUX SODIUM) [Concomitant]
  5. COLCHICINE (COLCHICINE) [Concomitant]
  6. DILANTIN (PHENYTOIN SODIUM) [Concomitant]
  7. FLOMAX (TAMSULOSIN HYDROCHLORIDE) [Concomitant]
  8. OMEPRAZOLE (OMEPRAZOLE) [Concomitant]
  9. VELCADE (BORTEZOMIB) [Concomitant]
  10. ATENOLOL (ATENOLOL) [Concomitant]
  11. PROSCAR [Concomitant]
  12. DECADRON (DEXAMETHASONE) [Concomitant]
  13. MACROBID (NITROFURANTOIN) [Concomitant]
  14. MARINOL [Concomitant]

REACTIONS (4)
  - Sepsis [None]
  - Urinary tract infection [None]
  - Pancytopenia [None]
  - Urinary retention [None]
